FAERS Safety Report 12710641 (Version 1)
Quarter: 2016Q3

REPORT INFORMATION
  Report Type: Spontaneous
  Country: US (occurrence: US)
  Receive Date: 20160902
  Receipt Date: 20160902
  Transmission Date: 20161109
  Serious: Yes (Hospitalization, Other)
  Sender: FDA-Public Use
  Company Number: US-SHIRE-US201610636

PATIENT
  Age: 71 Year
  Sex: Female
  Weight: 91.16 kg

DRUGS (16)
  1. NEURONTIN [Concomitant]
     Active Substance: GABAPENTIN
     Indication: NEUROPATHY PERIPHERAL
     Dosage: 300 MG, 1X/DAY:QD
     Route: 065
     Dates: start: 2001, end: 201608
  2. KLONOPIN [Concomitant]
     Active Substance: CLONAZEPAM
     Indication: CHRONIC FATIGUE SYNDROME
  3. PENTASA [Suspect]
     Active Substance: MESALAMINE
     Dosage: 250 MG, UNKNOWN (1-2 PER DAY)
     Route: 048
     Dates: end: 201408
  4. PENTASA [Suspect]
     Active Substance: MESALAMINE
     Dosage: 2500 MG, 1X/DAY:QD
     Route: 048
     Dates: start: 201608
  5. PROBIOTICS NOS [Concomitant]
     Active Substance: PROBIOTICS NOS
     Indication: PRODUCT USED FOR UNKNOWN INDICATION
     Dosage: UNK, UNKNOWN
     Route: 065
  6. PENTASA [Suspect]
     Active Substance: MESALAMINE
     Dosage: 4000 MG, 1X/DAY:QD
     Route: 048
     Dates: start: 201605, end: 201608
  7. SYNTHROID [Concomitant]
     Active Substance: LEVOTHYROXINE SODIUM
     Indication: PRODUCT USED FOR UNKNOWN INDICATION
     Dosage: 118.5 MG, OTHER (IN THE MORNING)
     Route: 065
  8. PENTASA [Suspect]
     Active Substance: MESALAMINE
     Dosage: 250 MG (THREE CAPSULES), UNKNOWN (PER DAY)
     Route: 048
     Dates: start: 201501, end: 201605
  9. PENTASA [Suspect]
     Active Substance: MESALAMINE
     Indication: COLITIS ULCERATIVE
     Dosage: 250 MG (NINE CAPSULES), UNKNOWN (PER DAY)
     Route: 048
     Dates: start: 2001
  10. ATIVAN [Concomitant]
     Active Substance: LORAZEPAM
     Indication: SLEEP DISORDER
     Dosage: 1 MG, OTHER (AT NIGHT)
     Route: 065
  11. KLONOPIN [Concomitant]
     Active Substance: CLONAZEPAM
     Indication: SLEEP DISORDER
     Dosage: 2 MG, OTHER (AT NIGHT)
     Route: 065
     Dates: start: 2001
  12. ASPIRIN                            /00002701/ [Concomitant]
     Active Substance: ASPIRIN
     Indication: PRODUCT USED FOR UNKNOWN INDICATION
     Dosage: UNK, 1X/DAY:QD
     Route: 065
  13. VITAMINS NOS [Concomitant]
     Active Substance: VITAMINS
     Indication: PRODUCT USED FOR UNKNOWN INDICATION
     Dosage: UNK, UNKNOWN (EVERY DAY)
     Route: 065
  14. IRON                               /00023503/ [Concomitant]
     Active Substance: IRON
     Indication: HAEMORRHAGIC DISORDER
     Dosage: UNK, UNKNOWN
     Route: 065
     Dates: end: 2016
  15. OMEPRAZOLE. [Concomitant]
     Active Substance: OMEPRAZOLE
     Indication: GASTRIC DISORDER
     Dosage: 20 MG, OTHER (AT NIGHT)
     Route: 065
     Dates: end: 201606
  16. XANAX [Concomitant]
     Active Substance: ALPRAZOLAM
     Indication: PRODUCT USED FOR UNKNOWN INDICATION
     Dosage: .025 MG, AS REQ^D
     Route: 065

REACTIONS (10)
  - Melaena [Recovered/Resolved]
  - Disability [Not Recovered/Not Resolved]
  - Stress [Not Recovered/Not Resolved]
  - Decreased appetite [Unknown]
  - Internal haemorrhage [Recovered/Resolved]
  - Colitis ulcerative [Unknown]
  - Alopecia [Not Recovered/Not Resolved]
  - Weight decreased [Not Recovered/Not Resolved]
  - Drug ineffective [Recovered/Resolved]
  - Unevaluable event [Unknown]

NARRATIVE: CASE EVENT DATE: 2001
